FAERS Safety Report 9460612 (Version 6)
Quarter: 2013Q4

REPORT INFORMATION
  Report Type: Spontaneous
  Country: JP (occurrence: JP)
  Receive Date: 20130815
  Receipt Date: 20131004
  Transmission Date: 20140711
  Serious: Yes (Hospitalization)
  Sender: FDA-Public Use
  Company Number: JP-B.I. PHARMACEUTICALS,INC./RIDGEFIELD-2013-BI-24312NB

PATIENT
  Age: 88 Year
  Sex: Female

DRUGS (5)
  1. TRAZENTA [Suspect]
     Indication: TYPE 2 DIABETES MELLITUS
     Dosage: 5 MG
     Route: 048
  2. TRAZENTA [Suspect]
     Dosage: 5 MG
     Route: 065
  3. TRAZENTA [Suspect]
     Dosage: 5 MG
     Route: 048
  4. GLUFAST [Suspect]
     Indication: TYPE 2 DIABETES MELLITUS
     Route: 048
  5. SEIBULE [Suspect]
     Indication: TYPE 2 DIABETES MELLITUS
     Route: 048

REACTIONS (2)
  - Dyspnoea [Recovered/Resolved]
  - Amylase increased [Not Recovered/Not Resolved]
